FAERS Safety Report 17282379 (Version 2)
Quarter: 2020Q1

REPORT INFORMATION
  Report Type: Spontaneous
  Country: JP (occurrence: JP)
  Receive Date: 20200117
  Receipt Date: 20200117
  Transmission Date: 20200409
  Serious: Yes (Death)
  Sender: FDA-Public Use
  Company Number: JP-EISAI MEDICAL RESEARCH-EC-2020-068596

PATIENT
  Age: 71 Year
  Sex: Female

DRUGS (2)
  1. LENVIMA [Suspect]
     Active Substance: LENVATINIB
     Route: 048
     Dates: start: 20170511, end: 20170601
  2. LENVIMA [Suspect]
     Active Substance: LENVATINIB
     Indication: THYROID CANCER
     Route: 048
     Dates: start: 20170501, end: 20170510

REACTIONS (5)
  - Death [Fatal]
  - Dyspnoea [Unknown]
  - Blood pressure increased [Unknown]
  - Protein urine present [Unknown]
  - Localised oedema [Unknown]

NARRATIVE: CASE EVENT DATE: 20170508
